FAERS Safety Report 24754660 (Version 1)
Quarter: 2024Q4

REPORT INFORMATION
  Report Type: Spontaneous
  Country: NZ (occurrence: NZ)
  Receive Date: 20241219
  Receipt Date: 20241219
  Transmission Date: 20250115
  Serious: Yes (Other)
  Sender: ANI
  Company Number: NZ-ANIPHARMA-2024-NZ-000037

PATIENT
  Sex: Male

DRUGS (9)
  1. ATACAND [Suspect]
     Active Substance: CANDESARTAN CILEXETIL
     Indication: Product used for unknown indication
  2. OMEPRAZOLE [Suspect]
     Active Substance: OMEPRAZOLE
  3. METOPROLOL [Concomitant]
     Active Substance: METOPROLOL
  4. ASPIRIN [Concomitant]
     Active Substance: ASPIRIN
  5. CLOPIDOGREL [Concomitant]
     Active Substance: CLOPIDOGREL BISULFATE
  6. EZETIMIBE [Concomitant]
     Active Substance: EZETIMIBE
  7. BENDROFLUMETHIAZIDE [Concomitant]
     Active Substance: BENDROFLUMETHIAZIDE
  8. AMLODIPINE [Concomitant]
     Active Substance: AMLODIPINE BESYLATE
  9. FLUCLOXACILLIN [Concomitant]
     Active Substance: FLUCLOXACILLIN

REACTIONS (6)
  - Myocardial infarction [Unknown]
  - Erectile dysfunction [Unknown]
  - Chest pain [Unknown]
  - Diarrhoea [Unknown]
  - Dizziness [Unknown]
  - Vertigo [Unknown]
